FAERS Safety Report 5808684-8 (Version None)
Quarter: 2008Q3

REPORT INFORMATION
  Report Type: 
  Country: None (occurrence: None)
  Receive Date: 20080714
  Receipt Date: 20080707
  Transmission Date: 20090109
  Serious: Yes (Other)
  Sender: FDA-Public Use
  Company Number: US-BAYER-200810728BCC

PATIENT
  Age: 27 Year
  Sex: Male
  Weight: 72 kg

DRUGS (1)
  1. ALKA SELTZER PLUS COLD AND COUGH EFFERVESCENT [Suspect]
     Indication: NASOPHARYNGITIS
     Route: 048
     Dates: start: 20080216

REACTIONS (4)
  - CARDIAC DISCOMFORT [None]
  - FATIGUE [None]
  - PANIC REACTION [None]
  - SOMNOLENCE [None]
